FAERS Safety Report 5372987-4 (Version None)
Quarter: 2007Q2

REPORT INFORMATION
  Report Type: 
  Country: None (occurrence: None)
  Receive Date: 20070619
  Receipt Date: 20070305
  Transmission Date: 20071010
  Serious: No
  Sender: FDA-Public Use
  Company Number: 2007US000602

PATIENT
  Age: 70 Year
  Sex: Female

DRUGS (5)
  1. VESICARE [Suspect]
     Indication: HYPERTONIC BLADDER
     Dosage: 5 MG, 10 MG, UID/QD, ORAL
     Route: 048
     Dates: start: 20061001, end: 20070201
  2. VESICARE [Suspect]
     Indication: HYPERTONIC BLADDER
     Dosage: 5 MG, 10 MG, UID/QD, ORAL
     Route: 048
     Dates: start: 20070201
  3. NORVASC [Concomitant]
  4. HYDROCHLOROTHIAZIDE [Concomitant]
  5. PREMARIN(MEDROGESTONE) [Concomitant]

REACTIONS (2)
  - CIRCUMSTANCE OR INFORMATION CAPABLE OF LEADING TO MEDICATION ERROR [None]
  - DRUG INEFFECTIVE [None]
